FAERS Safety Report 4477352-X (Version None)
Quarter: 2004Q4

REPORT INFORMATION
  Report Type: 
  Country: None (occurrence: None)
  Receive Date: 20041013
  Receipt Date: 20020327
  Transmission Date: 20050328
  Serious: Yes (Death)
  Sender: FDA-Public Use
  Company Number: 6633

PATIENT
  Age: 56 Year
  Sex: Male

DRUGS (1)
  1. ACYCLOVIR [Suspect]
     Indication: PROPHYLAXIS AGAINST TRANSPLANT REJECTION
     Dosage: 5 MG DAILY IV
     Route: 042

REACTIONS (2)
  - NEUROTOXICITY [None]
  - NEUTROPENIC SEPSIS [None]
